FAERS Safety Report 22008868 (Version 2)
Quarter: 2023Q1

REPORT INFORMATION
  Report Type: Other
  Country: GB (occurrence: GB)
  Receive Date: 20230220
  Receipt Date: 20230302
  Transmission Date: 20230418
  Serious: Yes (Hospitalization)
  Sender: FDA-Public Use
  Company Number: GB-ALVOGEN-2023089253

PATIENT
  Sex: Male

DRUGS (8)
  1. FLECAINIDE [Suspect]
     Active Substance: FLECAINIDE
     Indication: Atrial tachycardia
     Dosage: IN COMBINATION WITH OTHER ANTIARRHYTHMICS.
  2. FLECAINIDE [Suspect]
     Active Substance: FLECAINIDE
     Indication: Atrial tachycardia
  3. FLECAINIDE [Suspect]
     Active Substance: FLECAINIDE
     Indication: Atrial tachycardia
     Dosage: AT THE TIME OF DISCHARGE
  4. PROPRANOLOL [Concomitant]
     Active Substance: PROPRANOLOL HYDROCHLORIDE
     Indication: Atrial tachycardia
  5. PROPRANOLOL [Concomitant]
     Active Substance: PROPRANOLOL HYDROCHLORIDE
     Indication: Atrial tachycardia
     Dosage: AT THE TIME OF DISCHARGE
  6. MILRINONE [Concomitant]
     Active Substance: MILRINONE
     Indication: Systolic dysfunction
  7. IVABRADINE [Concomitant]
     Active Substance: IVABRADINE
     Indication: Atrial tachycardia
     Dosage: IN COMBINATION WITH OTHER ANTIARRHYTHMICS.
  8. AMIODARONE [Concomitant]
     Active Substance: AMIODARONE
     Indication: Atrial tachycardia
     Dosage: IN COMBINATION WITH OTHER ANTIARRHYTHMICS.

REACTIONS (5)
  - Toxicity to various agents [Unknown]
  - Lethargy [Unknown]
  - Vomiting [Unknown]
  - Electrocardiogram PR prolongation [Recovering/Resolving]
  - Electrocardiogram QRS complex prolonged [Recovering/Resolving]
